FAERS Safety Report 7759535-6 (Version None)
Quarter: 2011Q3

REPORT INFORMATION
  Report Type: 
  Country: None (occurrence: None)
  Receive Date: 20110919
  Receipt Date: 20110919
  Transmission Date: 20111222
  Serious: Yes (Hospitalization)
  Sender: FDA-Public Use
  Company Number: None

PATIENT
  Age: 58 Year
  Sex: Male
  Weight: 92.986 kg

DRUGS (1)
  1. YOHIMBE POWER MAX 2000 [Suspect]
     Dosage: 2000 MG
     Route: 048
     Dates: start: 20110916, end: 20110916

REACTIONS (9)
  - DYSPNOEA [None]
  - ASTHENIA [None]
  - PARAESTHESIA [None]
  - COLD SWEAT [None]
  - CHEST PAIN [None]
  - FALL [None]
  - HEART RATE INCREASED [None]
  - HOT FLUSH [None]
  - TOXICITY TO VARIOUS AGENTS [None]
